FAERS Safety Report 9484016 (Version 1)
Quarter: 2013Q3

REPORT INFORMATION
  Report Type: Spontaneous
  Country: US (occurrence: US)
  Receive Date: 20130828
  Receipt Date: 20130828
  Transmission Date: 20140515
  Serious: Yes (Death)
  Sender: FDA-Public Use
  Company Number: US-AMGEN-KDL359054

PATIENT
  Age: 43 Year
  Sex: Female
  Weight: 90.8 kg

DRUGS (5)
  1. ENBREL [Suspect]
     Indication: PSORIASIS
     Route: 065
  2. ENBREL [Suspect]
     Indication: PSORIASIS
     Route: 065
  3. ADALIMUMAB [Suspect]
     Dosage: 40 MG, Q2WK
     Dates: start: 200906, end: 20090719
  4. ANTIHYPERTENSIVE MEDICATION NOS [Concomitant]
  5. UNSPECIFIED MEDICATION [Concomitant]

REACTIONS (2)
  - Sudden death [Fatal]
  - Polycythaemia [Unknown]
